FAERS Safety Report 7638265-5 (Version None)
Quarter: 2011Q3

REPORT INFORMATION
  Report Type: 
  Country: None (occurrence: None)
  Receive Date: 20110726
  Receipt Date: 20110726
  Transmission Date: 20111222
  Serious: Yes (Death)
  Sender: FDA-Public Use
  Company Number: None

PATIENT
  Age: 77 Year
  Sex: Male

DRUGS (10)
  1. CITALOPRAM HYDROBROMIDE [Concomitant]
  2. FLUTICASONE NASAL SPRAY [Concomitant]
  3. PROAIR HFA [Concomitant]
  4. REVLIMID [Suspect]
     Indication: MULTIPLE MYELOMA
     Dosage: REVLIMID 10MG DAILY X21D/28D ORALLY 2 CYCLES
     Route: 048
  5. OMEPRAZOLE [Concomitant]
  6. ARICEPT [Concomitant]
  7. MORPHINE [Concomitant]
  8. K-TAB [Concomitant]
  9. TERAZOSIN HCL [Concomitant]
  10. FUROSEMIDE [Concomitant]

REACTIONS (2)
  - NEOPLASM MALIGNANT [None]
  - CARDIAC AMYLOIDOSIS [None]
